FAERS Safety Report 25191561 (Version 1)
Quarter: 2025Q2

REPORT INFORMATION
  Report Type: Spontaneous
  Country: AU (occurrence: AU)
  Receive Date: 20250414
  Receipt Date: 20250414
  Transmission Date: 20250716
  Serious: Yes (Hospitalization)
  Sender: MYLAN
  Company Number: AU-MYLANLABS-2025M1029428

PATIENT
  Sex: Female

DRUGS (4)
  1. CLOZARIL [Suspect]
     Active Substance: CLOZAPINE
     Indication: Schizophrenia
     Dosage: 450 MILLIGRAM, PM (AT NIGHT)
     Dates: start: 20180830
  2. CLOZARIL [Suspect]
     Active Substance: CLOZAPINE
     Dosage: 450 MILLIGRAM, PM (AT NIGHT)
     Route: 048
     Dates: start: 20180830
  3. CLOZARIL [Suspect]
     Active Substance: CLOZAPINE
     Dosage: 450 MILLIGRAM, PM (AT NIGHT)
     Route: 048
     Dates: start: 20180830
  4. CLOZARIL [Suspect]
     Active Substance: CLOZAPINE
     Dosage: 450 MILLIGRAM, PM (AT NIGHT)
     Dates: start: 20180830

REACTIONS (1)
  - Hospitalisation [Unknown]
